FAERS Safety Report 11977435 (Version 1)
Quarter: 2016Q1

REPORT INFORMATION
  Report Type: Spontaneous
  Country: GB (occurrence: GB)
  Receive Date: 20160129
  Receipt Date: 20160129
  Transmission Date: 20160526
  Serious: Yes (Other)
  Sender: FDA-Public Use
  Company Number: GB-TEVA-627447ACC

PATIENT
  Age: 63 Year
  Sex: Female
  Weight: 60 kg

DRUGS (1)
  1. DOXYCYCLINE. [Suspect]
     Active Substance: DOXYCYCLINE
     Dosage: 100 MILLIGRAM DAILY;
     Route: 048
     Dates: start: 20151215, end: 20160104

REACTIONS (8)
  - Hyperaesthesia [Recovering/Resolving]
  - Urticaria [Recovering/Resolving]
  - Sensory disturbance [Recovering/Resolving]
  - Discomfort [Recovering/Resolving]
  - Pruritus [Recovering/Resolving]
  - Peripheral coldness [Recovering/Resolving]
  - Paraesthesia [Recovering/Resolving]
  - Erythema [Recovering/Resolving]

NARRATIVE: CASE EVENT DATE: 20151215
